FAERS Safety Report 9685244 (Version 1)
Quarter: 2013Q4

REPORT INFORMATION
  Report Type: Spontaneous
  Country: US (occurrence: None)
  Receive Date: 20131112
  Receipt Date: 20131112
  Transmission Date: 20140711
  Serious: Yes (Life-Threatening, Hospitalization, Disabling, Other)
  Sender: FDA-Public Use
  Company Number: None

PATIENT
  Age: 50 None
  Sex: Male
  Weight: 95.26 kg

DRUGS (9)
  1. HALDOL DECANOATE [Suspect]
     Indication: PSYCHOTIC DISORDER
     Dosage: 1 ML EVERY 2 WEEKS
  2. HALDOL [Concomitant]
  3. ZOPINE [Concomitant]
  4. BACLOFEN [Concomitant]
  5. METOPROLOC [Concomitant]
  6. LAMIZTAL [Concomitant]
  7. ENVEGA [Concomitant]
  8. NEURONTIN [Concomitant]
  9. PRILOSEC [Concomitant]

REACTIONS (1)
  - Myocardial infarction [None]
